FAERS Safety Report 19039352 (Version 2)
Quarter: 2021Q3

REPORT INFORMATION
  Report Type: Report from Study
  Country: DE (occurrence: DE)
  Receive Date: 20210322
  Receipt Date: 20210827
  Transmission Date: 20211014
  Serious: Yes (Hospitalization, Other)
  Sender: FDA-Public Use
  Company Number: DE-TAKEDA-DE201733263

PATIENT
  Sex: Male
  Weight: 77 kg

DRUGS (10)
  1. TEDUGLUTIDE [Suspect]
     Active Substance: TEDUGLUTIDE
     Indication: SHORT-BOWEL SYNDROME
     Dosage: 3.89 MG, 1X/DAY:QD
     Route: 065
     Dates: start: 20141119
  2. CALCIMAGON D3 [Concomitant]
     Active Substance: CALCIUM\CHOLECALCIFEROL
     Indication: MINERAL SUPPLEMENTATION
  3. MAGNESIUM [Concomitant]
     Active Substance: MAGNESIUM
     Indication: MINERAL SUPPLEMENTATION
  4. UNACID [Concomitant]
     Indication: DIVERTICULITIS
  5. CALCIMAGON D3 [Concomitant]
     Active Substance: CALCIUM\CHOLECALCIFEROL
     Indication: VITAMIN SUPPLEMENTATION
  6. TEDUGLUTIDE [Suspect]
     Active Substance: TEDUGLUTIDE
     Indication: SHORT-BOWEL SYNDROME
     Dosage: 3.89 MG, 1X/DAY:QD
     Route: 065
     Dates: start: 20141119
  7. TEDUGLUTIDE [Suspect]
     Active Substance: TEDUGLUTIDE
     Indication: SHORT-BOWEL SYNDROME
     Dosage: 3.89 MG, 1X/DAY:QD
     Route: 065
     Dates: start: 20141119
  8. DEKRISTOL [Concomitant]
     Active Substance: CHOLECALCIFEROL
     Indication: OSTEOPENIA
  9. TEDUGLUTIDE [Suspect]
     Active Substance: TEDUGLUTIDE
     Indication: SHORT-BOWEL SYNDROME
     Dosage: 3.89 MG, 1X/DAY:QD
     Route: 065
     Dates: start: 20141119
  10. COLESTYRAMIN [Concomitant]
     Active Substance: CHOLESTYRAMINE
     Indication: DIARRHOEA

REACTIONS (5)
  - Diverticulitis [Recovered/Resolved]
  - Nasopharyngitis [Recovered/Resolved]
  - Mesenteric artery aneurysm [Recovered/Resolved]
  - Hepatic steatosis [Not Recovered/Not Resolved]
  - Nausea [Recovered/Resolved]

NARRATIVE: CASE EVENT DATE: 20170101
